FAERS Safety Report 12949730 (Version 1)
Quarter: 2016Q4

REPORT INFORMATION
  Report Type: Spontaneous
  Country: US (occurrence: US)
  Receive Date: 20161116
  Receipt Date: 20161116
  Transmission Date: 20170207
  Serious: No
  Sender: FDA-Public Use
  Company Number: None

PATIENT
  Age: 84 Year
  Sex: Male
  Weight: 92.2 kg

DRUGS (9)
  1. COD LIVER OIL [Concomitant]
     Active Substance: COD LIVER OIL
  2. D [Concomitant]
  3. VITAMIN B12 [Concomitant]
     Active Substance: CYANOCOBALAMIN
  4. E [Concomitant]
  5. VITAMIN C [Concomitant]
     Active Substance: ASCORBIC ACID
  6. A [Concomitant]
  7. OMEGA FATTY ACID [Concomitant]
  8. DOXYCYCLINE. [Suspect]
     Active Substance: DOXYCYCLINE
     Indication: PEMPHIGOID
     Dosage: QUANTITY:1 CAPSULE(S); TWICE A DAY; ORAL?
     Route: 048
  9. LUTEIN [Concomitant]
     Active Substance: LUTEIN

REACTIONS (3)
  - Dysphagia [None]
  - Pharyngeal oedema [None]
  - Odynophagia [None]

NARRATIVE: CASE EVENT DATE: 20161101
